FAERS Safety Report 8473660-6 (Version None)
Quarter: 2012Q2

REPORT INFORMATION
  Report Type: 
  Country: None (occurrence: None)
  Receive Date: 20120628
  Receipt Date: 20120622
  Transmission Date: 20120825
  Serious: Yes (Other)
  Sender: FDA-Public Use
  Company Number: US-MYLANLABS-2011S1016636

PATIENT
  Age: 26 Year
  Sex: Male

DRUGS (4)
  1. CLOZAPINE [Suspect]
     Route: 048
     Dates: end: 20110819
  2. CLOZAPINE [Suspect]
     Route: 048
     Dates: start: 20110823
  3. CLOZAPINE [Suspect]
     Route: 048
     Dates: end: 20110819
  4. CLOZAPINE [Suspect]
     Route: 048
     Dates: start: 20110823, end: 20120301

REACTIONS (2)
  - GRANULOCYTOPENIA [None]
  - LEUKOPENIA [None]
